FAERS Safety Report 19769223 (Version 1)
Quarter: 2021Q3

REPORT INFORMATION
  Report Type: Spontaneous
  Country: FR (occurrence: FR)
  Receive Date: 20210831
  Receipt Date: 20210831
  Transmission Date: 20211014
  Serious: Yes (Hospitalization)
  Sender: FDA-Public Use
  Company Number: FR-ACCORD-236899

PATIENT
  Age: 82 Year
  Sex: Male
  Weight: 71 kg

DRUGS (3)
  1. COLCHICINE. [Suspect]
     Active Substance: COLCHICINE
     Indication: GOUT
     Dosage: 1G FROM 9 TO 10/06 THEN 0.5MG FROM 18/06 TO 24/06
     Route: 048
     Dates: start: 20210609, end: 20210624
  2. FUROSEMIDE. [Suspect]
     Active Substance: FUROSEMIDE
     Indication: PRODUCT USED FOR UNKNOWN INDICATION
     Dosage: 40MG / DAY
     Route: 048
     Dates: start: 20210614
  3. AMOXICILLIN. [Suspect]
     Active Substance: AMOXICILLIN
     Indication: ARTHRITIS BACTERIAL
     Dosage: 1G * 4 / DAY FROM 9 TO 10/06 THEN 2G * 4 / DAY
     Route: 042
     Dates: start: 20210609

REACTIONS (2)
  - Hepatic cytolysis [Recovering/Resolving]
  - Gamma-glutamyltransferase increased [Recovering/Resolving]

NARRATIVE: CASE EVENT DATE: 20210618
